FAERS Safety Report 13588911 (Version 2)
Quarter: 2017Q3

REPORT INFORMATION
  Report Type: Report from Study
  Country: GB (occurrence: GB)
  Receive Date: 20170529
  Receipt Date: 20170711
  Transmission Date: 20171127
  Serious: Yes (Other)
  Sender: FDA-Public Use
  Company Number: GB-ADIENNEP-2017AD000153

PATIENT
  Age: 17 Year
  Sex: Female

DRUGS (3)
  1. ETOPOSIDE. [Suspect]
     Active Substance: ETOPOSIDE
     Indication: CHEMOTHERAPY
  2. CARBOPLATIN. [Suspect]
     Active Substance: CARBOPLATIN
     Indication: CHEMOTHERAPY
     Dosage: 3 DOSAGES 800 MG/M2
  3. THIOTEPA. [Suspect]
     Active Substance: THIOTEPA
     Indication: CHEMOTHERAPY
     Dosage: 1 DOSAGE 900 MG/M2 CYCLICAL

REACTIONS (3)
  - Cognitive disorder [Unknown]
  - Memory impairment [Unknown]
  - Hypopituitarism [Unknown]
